FAERS Safety Report 22217584 (Version 13)
Quarter: 2025Q2

REPORT INFORMATION
  Report Type: Report from Study
  Country: CA (occurrence: CA)
  Receive Date: 20230417
  Receipt Date: 20250430
  Transmission Date: 20250717
  Serious: Yes (Hospitalization, Other)
  Sender: ROCHE
  Company Number: CA-ROCHE-3056890

PATIENT
  Age: 60 Year
  Sex: Female

DRUGS (2)
  1. OCREVUS [Suspect]
     Active Substance: OCRELIZUMAB
     Indication: Primary progressive multiple sclerosis
     Dosage: THEN 600 MG EVERY 6 MONTH
     Route: 042
     Dates: start: 20210409
  2. APIXABAN [Concomitant]
     Active Substance: APIXABAN

REACTIONS (10)
  - Femur fracture [Unknown]
  - Hip fracture [Unknown]
  - Post procedural complication [Not Recovered/Not Resolved]
  - Arthropathy [Recovering/Resolving]
  - Pulmonary thrombosis [Recovered/Resolved]
  - Cataract [Unknown]
  - Fall [Unknown]
  - Mobility decreased [Unknown]
  - Off label use [Unknown]
  - Thrombosis [Not Recovered/Not Resolved]

NARRATIVE: CASE EVENT DATE: 20211204
